FAERS Safety Report 19189609 (Version 1)
Quarter: 2021Q2

REPORT INFORMATION
  Report Type: Spontaneous
  Country: NL (occurrence: NL)
  Receive Date: 20210428
  Receipt Date: 20210428
  Transmission Date: 20210717
  Serious: Yes (Hospitalization)
  Sender: FDA-Public Use
  Company Number: NL-TEVA-2021-NL-1905009

PATIENT
  Sex: Female
  Weight: 62 kg

DRUGS (1)
  1. SIMVASTATINE TABLET FO 20MG / BRAND NAME NOT SPECIFIED [Suspect]
     Active Substance: SIMVASTATIN
     Indication: HYPERCHOLESTEROLAEMIA
     Dosage: 1X PER DAY IN THE EVENING 1 TABLET. (ACCIDENTALLY TAKEN 2 THAT EVENING); 20 MG; THERAPY END DATE : A
     Dates: start: 2013

REACTIONS (2)
  - Pancreatitis acute [Recovered/Resolved]
  - Accidental overdose [Recovered/Resolved]
